FAERS Safety Report 22537730 (Version 1)
Quarter: 2023Q2

REPORT INFORMATION
  Report Type: Spontaneous
  Country: US (occurrence: US)
  Receive Date: 20230608
  Receipt Date: 20230608
  Transmission Date: 20230722
  Serious: Yes (Hospitalization, Other)
  Sender: FDA-Public Use
  Company Number: US-002147023-NVSC2023US125938

PATIENT
  Age: 15 Year
  Sex: Male
  Weight: 48.76 kg

DRUGS (15)
  1. ENTRESTO [Suspect]
     Active Substance: SACUBITRIL\VALSARTAN
     Indication: Product used for unknown indication
     Dosage: 2 DOSAGE FORM, BID (24/26 MG)
     Route: 048
  2. ENTRESTO [Suspect]
     Active Substance: SACUBITRIL\VALSARTAN
     Dosage: 2 DOSAGE FORM, BID (49/51 MG)
     Route: 048
  3. ENTRESTO [Suspect]
     Active Substance: SACUBITRIL\VALSARTAN
     Dosage: 2 DOSAGE FORM, BID (49/51 MG)
     Route: 048
     Dates: start: 20230316
  4. ENTRESTO [Suspect]
     Active Substance: SACUBITRIL\VALSARTAN
     Dosage: 1 DOSAGE FORM, BID (24/26 MG AM, 49/51 MG PM)
     Route: 048
  5. EXONDYS 51 [Suspect]
     Active Substance: ETEPLIRSEN
     Indication: Duchenne muscular dystrophy
     Dosage: 1600 MG
     Route: 042
     Dates: start: 20161229
  6. EXONDYS 51 [Suspect]
     Active Substance: ETEPLIRSEN
     Dosage: 1500 MG, QW
     Route: 042
     Dates: start: 20230413
  7. VITAMIN D [Concomitant]
     Active Substance: VITAMIN D NOS
     Indication: Product used for unknown indication
     Dosage: UNK
     Route: 065
  8. CALCIUM [Concomitant]
     Active Substance: CALCIUM
     Indication: Bone disorder
     Dosage: UNK
     Route: 065
  9. CARVEDILOL [Concomitant]
     Active Substance: CARVEDILOL
     Indication: Product used for unknown indication
     Dosage: UNK
     Route: 065
  10. EPLERENONE [Concomitant]
     Active Substance: EPLERENONE
     Indication: Cardiomyopathy
     Dosage: 50 MG, QD
     Route: 065
  11. FUROSEMIDE [Concomitant]
     Active Substance: FUROSEMIDE
     Indication: Product used for unknown indication
     Dosage: 10 MG, QD
     Route: 065
  12. SPIRONOLACTONE [Concomitant]
     Active Substance: SPIRONOLACTONE
     Indication: Product used for unknown indication
     Dosage: 25 MG, QD
     Route: 065
  13. LASIX [Concomitant]
     Active Substance: FUROSEMIDE
     Indication: Product used for unknown indication
     Dosage: UNK
     Route: 065
  14. PREDNISONE [Concomitant]
     Active Substance: PREDNISONE
     Indication: Product used for unknown indication
     Dosage: UNK
     Route: 065
  15. ASPIRIN [Concomitant]
     Active Substance: ASPIRIN
     Indication: Product used for unknown indication
     Dosage: UNK
     Route: 065

REACTIONS (42)
  - Gastrooesophageal reflux disease [Recovered/Resolved]
  - Cardiac failure [Unknown]
  - Cardiac failure congestive [Not Recovered/Not Resolved]
  - Cough [Unknown]
  - Dyspnoea [Unknown]
  - Dysphagia [Unknown]
  - Abdominal discomfort [Unknown]
  - Fatigue [Unknown]
  - Pulmonary congestion [Unknown]
  - Haemoptysis [Unknown]
  - Scoliosis [Recovered/Resolved]
  - Ventricular tachycardia [Unknown]
  - Mitral valve incompetence [Unknown]
  - Tricuspid valve incompetence [Unknown]
  - Aortic valve incompetence [Unknown]
  - Pulmonary artery dilatation [Unknown]
  - Pericardial effusion [Unknown]
  - Electrocardiogram ST segment elevation [Unknown]
  - Electrocardiogram T wave inversion [Unknown]
  - Respiratory tract infection [Unknown]
  - Productive cough [Unknown]
  - Hypotension [Not Recovered/Not Resolved]
  - Left ventricular hypertrophy [Unknown]
  - Heart rate increased [Unknown]
  - Ventricular extrasystoles [Unknown]
  - Asthenia [Unknown]
  - Inferior vena cava dilatation [Unknown]
  - Atrial enlargement [Unknown]
  - Ventricular dysfunction [Unknown]
  - Systolic dysfunction [Unknown]
  - Left atrial enlargement [Unknown]
  - Joint dislocation [Unknown]
  - Arthralgia [Unknown]
  - Weight decreased [Unknown]
  - Regurgitation [Unknown]
  - Somnolence [Unknown]
  - Chest discomfort [Unknown]
  - Abdominal pain upper [Unknown]
  - Palpitations [Unknown]
  - Nausea [Unknown]
  - Early satiety [Unknown]
  - Abdominal distension [Recovered/Resolved]

NARRATIVE: CASE EVENT DATE: 20210519
